FAERS Safety Report 6278689-4 (Version None)
Quarter: 2009Q3

REPORT INFORMATION
  Report Type: 
  Country: None (occurrence: None)
  Receive Date: 20090721
  Receipt Date: 20090706
  Transmission Date: 20100115
  Serious: Yes (Hospitalization)
  Sender: FDA-Public Use
  Company Number: 062750-2009-00005

PATIENT
  Age: 24 Year
  Sex: Male
  Weight: 63.5036 kg

DRUGS (1)
  1. ZICAM COLD REMEDY COUGH MAX SPRAY [Suspect]
     Dosage: POSSIBLE BOTTLE INGESTE
     Dates: start: 20090706

REACTIONS (2)
  - LOSS OF CONSCIOUSNESS [None]
  - RESPIRATORY ARREST [None]
